FAERS Safety Report 25813661 (Version 1)
Quarter: 2025Q3

REPORT INFORMATION
  Report Type: Spontaneous
  Country: US (occurrence: US)
  Receive Date: 20250917
  Receipt Date: 20250917
  Transmission Date: 20251021
  Serious: Yes (Other)
  Sender: GRIFOLS
  Company Number: US-IGSA-BIG0037375

PATIENT
  Age: 29 Year
  Sex: Female

DRUGS (3)
  1. GAMUNEX-C [Suspect]
     Active Substance: HUMAN IMMUNOGLOBULIN G
     Indication: Immunodeficiency common variable
     Dosage: 20 GRAM, Q.4WK.
     Route: 042
     Dates: start: 20250807, end: 20250807
  2. GAMUNEX-C [Suspect]
     Active Substance: HUMAN IMMUNOGLOBULIN G
     Dosage: 20 GRAM, Q.4WK.
     Route: 042
     Dates: start: 20221118
  3. GAMUNEX-C [Suspect]
     Active Substance: HUMAN IMMUNOGLOBULIN G
     Dosage: 20 GRAM, Q.4WK.
     Route: 042

REACTIONS (5)
  - Cough [Unknown]
  - Oropharyngeal pain [Unknown]
  - Sputum increased [Unknown]
  - Pharyngeal paraesthesia [Unknown]
  - Dyspnoea [Unknown]

NARRATIVE: CASE EVENT DATE: 20250807
